FAERS Safety Report 7667568-3 (Version None)
Quarter: 2011Q3

REPORT INFORMATION
  Report Type: 
  Country: None (occurrence: None)
  Receive Date: 20110806
  Receipt Date: 20110421
  Transmission Date: 20111222
  Serious: No
  Sender: FDA-Public Use
  Company Number: PR-ABBOTT-11P-163-0717709-00

PATIENT
  Sex: Female
  Weight: 79.45 kg

DRUGS (3)
  1. NIASPAN [Suspect]
     Indication: HIGH DENSITY LIPOPROTEIN ABNORMAL
  2. SYNTHROID [Concomitant]
     Indication: THYROID NEOPLASM
  3. NIASPAN [Suspect]
     Indication: BLOOD CHOLESTEROL
     Dosage: AT BEDTIME
     Dates: start: 20110405

REACTIONS (5)
  - GENERALISED ERYTHEMA [None]
  - FEELING HOT [None]
  - HEADACHE [None]
  - SKIN BURNING SENSATION [None]
  - FLUSHING [None]
